FAERS Safety Report 13144175 (Version 3)
Quarter: 2020Q4

REPORT INFORMATION
  Report Type: Report from Study
  Country: CR (occurrence: CR)
  Receive Date: 20170124
  Receipt Date: 20201008
  Transmission Date: 20210113
  Serious: Yes (Other)
  Sender: FDA-Public Use
  Company Number: PHHY2017CR006114

PATIENT
  Sex: Female
  Weight: 73 kg

DRUGS (1)
  1. EXFORGE HCT [Suspect]
     Active Substance: AMLODIPINE BESYLATE\HYDROCHLOROTHIAZIDE\VALSARTAN
     Indication: HYPERTENSION
     Dosage: 1 DF (AMLODIPINE 10 MG, HYDROCHLOROTHIAZIDE 25 MG, VALSARTAN 320 MG), QD (MORNING)
     Route: 065
     Dates: start: 2010

REACTIONS (6)
  - Nervousness [Unknown]
  - Hypotension [Not Recovered/Not Resolved]
  - Arrhythmia [Recovering/Resolving]
  - Myocardial infarction [Recovering/Resolving]
  - Heart rate decreased [Recovering/Resolving]
  - Feeling abnormal [Recovering/Resolving]

NARRATIVE: CASE EVENT DATE: 2016
